FAERS Safety Report 25770637 (Version 1)
Quarter: 2025Q3

REPORT INFORMATION
  Report Type: Spontaneous
  Country: US (occurrence: US)
  Receive Date: 20250908
  Receipt Date: 20250908
  Transmission Date: 20251021
  Serious: No
  Sender: GLENMARK
  Company Number: US-GLENMARK PHARMACEUTICALS-2024GMK096798

PATIENT

DRUGS (1)
  1. ACYCLOVIR [Suspect]
     Active Substance: ACYCLOVIR
     Indication: Herpes virus infection
     Route: 065

REACTIONS (4)
  - Facial pain [Unknown]
  - Scab [Unknown]
  - Malaise [Unknown]
  - Skin irritation [Not Recovered/Not Resolved]
